FAERS Safety Report 10462646 (Version 3)
Quarter: 2014Q4

REPORT INFORMATION
  Report Type: Spontaneous
  Country: US (occurrence: AU)
  Receive Date: 20140918
  Receipt Date: 20141223
  Transmission Date: 20150528
  Serious: Yes (Hospitalization)
  Sender: FDA-Public Use
  Company Number: AU-FRI-1000070742

PATIENT
  Age: 55 Year
  Sex: Male
  Weight: 75 kg

DRUGS (2)
  1. SAPHRIS [Suspect]
     Active Substance: ASENAPINE MALEATE
     Indication: BIPOLAR DISORDER
     Dosage: 20 MG
     Route: 048
     Dates: start: 201401, end: 201404
  2. VALIUM [Concomitant]
     Active Substance: DIAZEPAM

REACTIONS (7)
  - Abdominal pain [Unknown]
  - Abdominal distension [Unknown]
  - Weight increased [Recovered/Resolved]
  - Malaise [Recovered/Resolved]
  - Fluid retention [Unknown]
  - Incorrect route of drug administration [Recovered/Resolved]
  - Alcoholic pancreatitis [Unknown]

NARRATIVE: CASE EVENT DATE: 201401
